FAERS Safety Report 21915804 (Version 3)
Quarter: 2023Q1

REPORT INFORMATION
  Report Type: Spontaneous
  Country: FR (occurrence: FR)
  Receive Date: 20230126
  Receipt Date: 20230221
  Transmission Date: 20230417
  Serious: Yes (Death, Life-Threatening, Hospitalization, Other)
  Sender: FDA-Public Use
  Company Number: FR-BRISTOL-MYERS SQUIBB COMPANY-2023-004013

PATIENT
  Age: 57 Year
  Sex: Male
  Weight: 51 kg

DRUGS (3)
  1. OPDIVO [Suspect]
     Active Substance: NIVOLUMAB
     Indication: Adenocarcinoma gastric
     Dosage: 2 WEEKS
     Route: 042
     Dates: end: 20221103
  2. FLUOROURACIL\LEUCOVORIN CALCIUM\OXALIPLATIN [Suspect]
     Active Substance: FLUOROURACIL\LEUCOVORIN CALCIUM\OXALIPLATIN
     Indication: Chemotherapy
  3. FLUOROURACIL\LEUCOVORIN CALCIUM\OXALIPLATIN [Suspect]
     Active Substance: FLUOROURACIL\LEUCOVORIN CALCIUM\OXALIPLATIN
     Indication: Adenocarcinoma gastric

REACTIONS (5)
  - Malignant neoplasm progression [Fatal]
  - Hyperthermia [Unknown]
  - Acute kidney injury [Unknown]
  - Urinary tract infection [Unknown]
  - Septic shock [Unknown]

NARRATIVE: CASE EVENT DATE: 20220922
